FAERS Safety Report 9110095 (Version 1)
Quarter: 2013Q1

REPORT INFORMATION
  Report Type: Spontaneous
  Country: FR (occurrence: FR)
  Receive Date: 20130222
  Receipt Date: 20130222
  Transmission Date: 20140127
  Serious: Yes (Hospitalization)
  Sender: FDA-Public Use
  Company Number: FR-MYLANLABS-2013S1002901

PATIENT
  Sex: Male

DRUGS (2)
  1. CLOZAPINE [Suspect]
     Indication: SCHIZOPHRENIA
     Dosage: 325 MG/DAY
     Route: 064
  2. CLOZAPINE [Suspect]
     Indication: SCHIZOPHRENIA
     Dosage: 100 MG/DAY
     Route: 064

REACTIONS (3)
  - Macrosomia [Recovered/Resolved]
  - Gastrointestinal obstruction [Recovered/Resolved]
  - Exposure during pregnancy [Recovered/Resolved]
